FAERS Safety Report 21053403 (Version 1)
Quarter: 2022Q3

REPORT INFORMATION
  Report Type: Spontaneous
  Country: CN (occurrence: CN)
  Receive Date: 20220707
  Receipt Date: 20220707
  Transmission Date: 20221027
  Serious: Yes (Hospitalization, Other)
  Sender: FDA-Public Use
  Company Number: CN-JNJFOC-20220700177

PATIENT
  Age: 44 Year
  Sex: Male

DRUGS (2)
  1. REMICADE [Suspect]
     Active Substance: INFLIXIMAB
     Indication: Psoriasis
     Route: 041
     Dates: start: 202103
  2. REMICADE [Suspect]
     Active Substance: INFLIXIMAB
     Route: 041
     Dates: start: 202104

REACTIONS (3)
  - HIV infection [Unknown]
  - Candida infection [Not Recovered/Not Resolved]
  - Pneumocystis jirovecii pneumonia [Recovering/Resolving]
